FAERS Safety Report 9911307 (Version 1)
Quarter: 2014Q1

REPORT INFORMATION
  Report Type: Spontaneous
  Country: CH (occurrence: CH)
  Receive Date: 20140219
  Receipt Date: 20140219
  Transmission Date: 20141002
  Serious: Yes (Life-Threatening, Other)
  Sender: FDA-Public Use
  Company Number: CH-TEVA-461738ISR

PATIENT
  Age: 94 Year
  Sex: Female

DRUGS (10)
  1. TORASEM-MEPHA 10 MG [Suspect]
     Dosage: 10 MILLIGRAM DAILY; 1-0-0-0
     Route: 048
  2. SEROQUEL [Interacting]
     Indication: RESTLESSNESS
     Dosage: 25 MILLIGRAM DAILY;
     Route: 048
     Dates: end: 20140116
  3. SEROQUEL [Interacting]
     Dosage: 50 MILLIGRAM DAILY;
     Route: 048
     Dates: start: 20140117, end: 20140119
  4. HALDOL [Suspect]
     Indication: RESTLESSNESS
     Dosage: 6 GTT DAILY; REGIMEN WAS CHANGED FROM ^PERMANENT^ TO ^AS REQUIRED^
     Route: 048
     Dates: start: 20140117
  5. HALDOL [Suspect]
     Dosage: REGIMEN WAS CHANGED FROM ^PERMANENT^ TO ^AS REQUIRED^
     Route: 048
  6. COVERSUM 5 MG [Suspect]
     Dosage: 2.5 MILLIGRAM DAILY; 0.5-0-0-0
     Route: 048
  7. VI-DE 3 DROPS [Concomitant]
     Dosage: 30 GTT DAILY; 30-0-0-0
     Route: 048
  8. BETAHISTIN 24 MG [Concomitant]
     Dosage: 24 MILLIGRAM DAILY; 0.5-0.5-0-0
     Route: 048
  9. ESOMEP MUPS [Concomitant]
     Dosage: 1 DOSAGE FORMS DAILY; DOSE UNKNOWN, 1-0-0-0
     Route: 048
  10. TEMESTA EXPIDET 1 MG [Concomitant]
     Dosage: .5 MILLIGRAM DAILY; 0-0-0-0.5
     Route: 060

REACTIONS (4)
  - Drug interaction [Unknown]
  - Hypotension [Recovering/Resolving]
  - Somnolence [Recovered/Resolved]
  - Fall [Recovered/Resolved]
